FAERS Safety Report 12382833 (Version 2)
Quarter: 2016Q2

REPORT INFORMATION
  Report Type: Spontaneous
  Country: US (occurrence: US)
  Receive Date: 20160518
  Receipt Date: 20160520
  Transmission Date: 20160815
  Serious: Yes (Other)
  Sender: FDA-Public Use
  Company Number: US-PFIZER INC-2016263066

PATIENT
  Age: 63 Year
  Sex: Male
  Weight: 91.16 kg

DRUGS (1)
  1. VIAGRA [Suspect]
     Active Substance: SILDENAFIL CITRATE
     Indication: ERECTILE DYSFUNCTION
     Dosage: 50 MG, MAY BE TWICE A MONTH

REACTIONS (2)
  - Deafness [Recovering/Resolving]
  - Auditory disorder [Unknown]
